FAERS Safety Report 13305109 (Version 1)
Quarter: 2017Q1

REPORT INFORMATION
  Report Type: Spontaneous
  Country: US (occurrence: US)
  Receive Date: 20170307
  Receipt Date: 20170307
  Transmission Date: 20170428
  Serious: No
  Sender: FDA-Public Use
  Company Number: None

PATIENT
  Age: 73 Year
  Sex: Male
  Weight: 117.5 kg

DRUGS (1)
  1. ZOLEDRONIC [Suspect]
     Active Substance: ZOLEDRONIC ACID
     Indication: PLASMA CELL MYELOMA
     Dosage: 3.3 MG OTHER IV
     Route: 042
     Dates: start: 20110523, end: 20160601

REACTIONS (3)
  - Osteonecrosis [None]
  - Tooth abscess [None]
  - Actinomyces test positive [None]

NARRATIVE: CASE EVENT DATE: 20160623
